FAERS Safety Report 6310825-3 (Version None)
Quarter: 2009Q4

REPORT INFORMATION
  Report Type: 
  Country: None (occurrence: None)
  Receive Date: 20090812
  Receipt Date: 20090805
  Transmission Date: 20100525
  Serious: Yes (Hospitalization)
  Sender: FDA-Public Use
  Company Number: 2009SP006413

PATIENT
  Age: 45 Year
  Sex: Male
  Weight: 87.0906 kg

DRUGS (11)
  1. PEG-INTRON [Suspect]
     Indication: HEPATITIS C
     Dosage: 150 MCG; QW; IM
     Route: 030
     Dates: start: 20081209, end: 20090322
  2. PEG-INTRON [Suspect]
     Indication: HEPATITIS C
     Dosage: 150 MCG; QW; IM
     Route: 030
     Dates: start: 20090330
  3. RIBAVIRIN [Suspect]
     Indication: HEPATITIS C
     Dosage: 1200 MG;QD;PO
     Route: 048
     Dates: start: 20081209, end: 20090322
  4. RIBAVIRIN [Suspect]
     Indication: HEPATITIS C
     Dosage: 1200 MG;QD;PO
     Route: 048
     Dates: start: 20090330
  5. BLINDED SCJ 503034             (HCV PROTEASE INHIBITOR) [Suspect]
  6. BLINDED SCJ 50304 (S-P) (HCV PROTEASE INHIBITOR) [Suspect]
  7. BLINDED SCJ 50304 (S-P) (HCV PROTEASE INHIBITOR) [Suspect]
  8. BLINDED SCJ 50304  (HCV PROTEASE INHIBITOR) [Suspect]
  9. AMBIEN [Concomitant]
  10. NEUPOGEN [Concomitant]
  11. IBUPROFEN [Concomitant]

REACTIONS (7)
  - AFFECTIVE DISORDER [None]
  - BIPOLAR I DISORDER [None]
  - DEPRESSION [None]
  - DISTURBANCE IN ATTENTION [None]
  - PSYCHIATRIC DECOMPENSATION [None]
  - PSYCHOMOTOR HYPERACTIVITY [None]
  - SUICIDAL IDEATION [None]
